FAERS Safety Report 13820811 (Version 1)
Quarter: 2017Q3

REPORT INFORMATION
  Report Type: Spontaneous
  Country: US (occurrence: US)
  Receive Date: 20170801
  Receipt Date: 20170801
  Transmission Date: 20171127
  Serious: No
  Sender: FDA-Public Use
  Company Number: US-BAYER-2017-146735

PATIENT
  Age: 72 Year
  Sex: Male
  Weight: 156 kg

DRUGS (19)
  1. HERBALIFE PRODUCTS [Concomitant]
     Active Substance: HERBALS
  2. HERBALIFE PRODUCTS [Concomitant]
     Active Substance: HERBALS
  3. METAMUCIL [Concomitant]
     Active Substance: PLANTAGO SEED
  4. WARFARIN [Concomitant]
     Active Substance: WARFARIN
  5. ONGLYZA [Concomitant]
     Active Substance: SAXAGLIPTIN HYDROCHLORIDE
  6. ALLOPURINOL. [Concomitant]
     Active Substance: ALLOPURINOL
  7. METOPROLOL. [Concomitant]
     Active Substance: METOPROLOL
  8. HERBALIFE PRODUCTS [Concomitant]
     Active Substance: HERBALS
  9. LASIX [Concomitant]
     Active Substance: FUROSEMIDE
  10. GLIPIZIDE. [Concomitant]
     Active Substance: GLIPIZIDE
  11. HERBALIFE PRODUCTS [Concomitant]
     Active Substance: HERBALS
  12. MULTIVITAMIN [Concomitant]
     Active Substance: VITAMINS
  13. FOLIC ACID. [Concomitant]
     Active Substance: FOLIC ACID
  14. LISINOPRIL. [Concomitant]
     Active Substance: LISINOPRIL
  15. HERBALIFE PRODUCTS [Concomitant]
     Active Substance: HERBALS
  16. NIACIN. [Concomitant]
     Active Substance: NIACIN
  17. MIRALAX [Suspect]
     Active Substance: POLYETHYLENE GLYCOL 3350
     Indication: GASTROINTESTINAL DISORDER
     Route: 048
     Dates: end: 20170728
  18. HERBALIFE PRODUCTS [Concomitant]
     Active Substance: HERBALS
  19. SELENIUM [SELENIUM] [Concomitant]

REACTIONS (3)
  - Product use issue [Unknown]
  - Inappropriate prescribing [Unknown]
  - Product use in unapproved indication [Unknown]

NARRATIVE: CASE EVENT DATE: 201707
